FAERS Safety Report 11654601 (Version 2)
Quarter: 2015Q4

REPORT INFORMATION
  Report Type: Spontaneous
  Country: US (occurrence: US)
  Receive Date: 20151023
  Receipt Date: 20151106
  Transmission Date: 20160304
  Serious: Yes (Hospitalization, Other)
  Sender: FDA-Public Use
  Company Number: US-SHIRE-US201512854

PATIENT
  Age: 41 Year
  Sex: Male

DRUGS (1)
  1. VPRIV [Suspect]
     Active Substance: VELAGLUCERASE ALFA
     Indication: GAUCHER^S DISEASE
     Dosage: 3600 IU (ALTERNATING WITH 4000 IU), 1X/2WKS
     Route: 041
     Dates: start: 20100412

REACTIONS (1)
  - Hernia [Unknown]

NARRATIVE: CASE EVENT DATE: 20151007
